FAERS Safety Report 11322329 (Version 1)
Quarter: 2015Q3

REPORT INFORMATION
  Report Type: Spontaneous
  Country: TR (occurrence: None)
  Receive Date: 20150728
  Receipt Date: 20150728
  Transmission Date: 20151125
  Serious: Yes (Hospitalization)
  Sender: FDA-Public Use
  Company Number: UCM201507-000512

PATIENT
  Age: 43 Year
  Sex: Male

DRUGS (1)
  1. AMLODIPINE [Suspect]
     Active Substance: AMLODIPINE BESYLATE
     Indication: SUICIDE ATTEMPT

REACTIONS (8)
  - Pulmonary oedema [None]
  - Haemodynamic instability [None]
  - Intentional overdose [None]
  - Shock [None]
  - Acute kidney injury [None]
  - Suicide attempt [None]
  - Sinus tachycardia [None]
  - Hypoxia [None]
